FAERS Safety Report 12392838 (Version 1)
Quarter: 2016Q2

REPORT INFORMATION
  Report Type: Spontaneous
  Country: US (occurrence: US)
  Receive Date: 20160523
  Receipt Date: 20160523
  Transmission Date: 20160815
  Serious: No
  Sender: FDA-Public Use
  Company Number: US-TEVA-629397USA

PATIENT
  Sex: Female

DRUGS (2)
  1. JINTELI [Suspect]
     Active Substance: ETHINYL ESTRADIOL\NORETHINDRONE ACETATE
     Indication: HOT FLUSH
  2. JINTELI [Suspect]
     Active Substance: ETHINYL ESTRADIOL\NORETHINDRONE ACETATE
     Indication: MENOPAUSE
     Route: 065

REACTIONS (2)
  - Intentional product misuse [Unknown]
  - Alopecia [Unknown]
